FAERS Safety Report 13848149 (Version 1)
Quarter: 2017Q3

REPORT INFORMATION
  Report Type: Spontaneous
  Country: US (occurrence: US)
  Receive Date: 20170809
  Receipt Date: 20170809
  Transmission Date: 20171127
  Serious: No
  Sender: FDA-Public Use
  Company Number: US-PURDUE-USA-2017-0138741

PATIENT
  Age: 35 Year
  Sex: Female

DRUGS (4)
  1. BUTRANS [Suspect]
     Active Substance: BUPRENORPHINE
     Indication: CEREBROSPINAL FLUID LEAKAGE
  2. BUTRANS [Suspect]
     Active Substance: BUPRENORPHINE
     Indication: NERVE INJURY
     Dosage: 15 MCG/HR, WEEKLY
     Route: 062
     Dates: start: 20170425, end: 20170505
  3. BUTRANS [Suspect]
     Active Substance: BUPRENORPHINE
     Indication: CRANIOCEREBRAL INJURY
     Dosage: 10 MCG/HR, WEEKLY
     Route: 062
     Dates: start: 20170505, end: 20170507
  4. BUTRANS [Suspect]
     Active Substance: BUPRENORPHINE
     Indication: INTRACRANIAL HYPOTENSION
     Dosage: 10 MCG/HR, WEEKLY
     Route: 062
     Dates: start: 20170323, end: 20170425

REACTIONS (6)
  - Application site vesicles [Not Recovered/Not Resolved]
  - Application site discharge [Not Recovered/Not Resolved]
  - Hyperhidrosis [Not Recovered/Not Resolved]
  - Application site pain [Not Recovered/Not Resolved]
  - Application site pruritus [Not Recovered/Not Resolved]
  - Malaise [Not Recovered/Not Resolved]

NARRATIVE: CASE EVENT DATE: 20170425
